FAERS Safety Report 15812574 (Version 3)
Quarter: 2019Q1

REPORT INFORMATION
  Report Type: Spontaneous
  Country: CN (occurrence: CN)
  Receive Date: 20190111
  Receipt Date: 20190118
  Transmission Date: 20190417
  Serious: Yes (Death, Hospitalization, Other)
  Sender: FDA-Public Use
  Company Number: CN-ASTRAZENECA-2019SE05136

PATIENT
  Sex: Male

DRUGS (1)
  1. IRESSA [Suspect]
     Active Substance: GEFITINIB
     Indication: LUNG ADENOCARCINOMA
     Route: 048
     Dates: start: 20181230, end: 20190105

REACTIONS (7)
  - Death [Fatal]
  - Dyspnoea [Recovered/Resolved]
  - General physical health deterioration [Unknown]
  - Discomfort [Recovered/Resolved]
  - Respiratory arrest [Unknown]
  - Lung disorder [Unknown]
  - Therapy cessation [Unknown]

NARRATIVE: CASE EVENT DATE: 20190105
